FAERS Safety Report 8394776-9 (Version None)
Quarter: 2012Q2

REPORT INFORMATION
  Report Type: 
  Country: None (occurrence: None)
  Receive Date: 20120530
  Receipt Date: 20120522
  Transmission Date: 20120825
  Serious: Yes (Hospitalization)
  Sender: FDA-Public Use
  Company Number: US-ASTELLAS-2012US004935

PATIENT
  Sex: Female
  Weight: 30 kg

DRUGS (1)
  1. PROGRAF [Suspect]
     Indication: RENAL TRANSPLANT
     Dosage: 1.5 MG, BID
     Route: 048
     Dates: start: 20090101

REACTIONS (12)
  - VOMITING [None]
  - MENTAL STATUS CHANGES [None]
  - IMMUNOSUPPRESSANT DRUG LEVEL INCREASED [None]
  - BLOOD MAGNESIUM ABNORMAL [None]
  - BLOOD ALBUMIN DECREASED [None]
  - BLOOD UREA INCREASED [None]
  - WEIGHT DECREASED [None]
  - CARBON DIOXIDE ABNORMAL [None]
  - BLOOD CREATININE INCREASED [None]
  - MIGRAINE [None]
  - BLOOD POTASSIUM ABNORMAL [None]
  - BLOOD GLUCOSE INCREASED [None]
